FAERS Safety Report 6044390 (Version 2)
Quarter: 2020Q3

REPORT INFORMATION
  Report Type: Report from Study
  Country: GB (occurrence: GB)
  Receive Date: 20060512
  Receipt Date: 20060811
  Transmission Date: 20201105
  Serious: Yes (Hospitalization)
  Sender: FDA-Public Use
  Company Number: GB-ROCHE-445996

PATIENT
  Age: 73 Year
  Sex: Female

DRUGS (1)
  1. IBANDRONIC ACID. [Suspect]
     Active Substance: IBANDRONIC ACID
     Indication: PAIN
     Route: 042
     Dates: start: 20060406, end: 20060406

REACTIONS (4)
  - Pleural effusion [None]
  - Dehydration [Recovered/Resolved]
  - Vomiting [Recovered/Resolved]
  - Pyrexia [None]

NARRATIVE: CASE EVENT DATE: 20060419
